FAERS Safety Report 9418229 (Version 1)
Quarter: 2013Q3

REPORT INFORMATION
  Report Type: Spontaneous
  Country: US (occurrence: US)
  Receive Date: 20130724
  Receipt Date: 20130724
  Transmission Date: 20140515
  Serious: Yes (Hospitalization)
  Sender: FDA-Public Use
  Company Number: US-GILEAD-2013-0079980

PATIENT
  Sex: Female

DRUGS (3)
  1. LETAIRIS [Suspect]
     Indication: PRODUCT USED FOR UNKNOWN INDICATION
     Dosage: 5 MG, QD
     Route: 048
  2. LETAIRIS [Suspect]
     Dosage: 10 MG, QD
     Route: 048
     Dates: start: 20111208
  3. ADCIRCA [Concomitant]

REACTIONS (2)
  - Catheterisation cardiac [Unknown]
  - Blood creatinine increased [Unknown]
